FAERS Safety Report 23053435 (Version 1)
Quarter: 2023Q4

REPORT INFORMATION
  Report Type: Spontaneous
  Country: US (occurrence: US)
  Receive Date: 20231011
  Receipt Date: 20231011
  Transmission Date: 20240110
  Serious: No
  Sender: FDA-Public Use
  Company Number: US-BRISTOL-MYERS SQUIBB COMPANY-2023-144243

PATIENT
  Age: 66 Year
  Sex: Female

DRUGS (1)
  1. THALOMID [Suspect]
     Active Substance: THALIDOMIDE
     Indication: Breast cancer
     Dosage: DOSE : UNKNOWN;     FREQ : ONCE A NIGHT
     Route: 048
     Dates: start: 202308

REACTIONS (3)
  - Pruritus [Unknown]
  - Urticaria [Unknown]
  - Off label use [Unknown]
